FAERS Safety Report 4874421-7 (Version None)
Quarter: 2006Q1

REPORT INFORMATION
  Report Type: 
  Country: None (occurrence: None)
  Receive Date: 20060104
  Receipt Date: 20051222
  Transmission Date: 20060701
  Serious: Yes (Hospitalization)
  Sender: FDA-Public Use
  Company Number: 2005PV001039

PATIENT
  Age: 64 Year
  Sex: Female
  Weight: 69.8539 kg

DRUGS (20)
  1. BYETTA [Suspect]
     Indication: DIABETES MELLITUS NON-INSULIN-DEPENDENT
     Dosage: 5 MCG; BID; SC
     Route: 058
     Dates: start: 20050808, end: 20050811
  2. GLUCOVANCE [Concomitant]
  3. LANTUS [Concomitant]
  4. POTASSIUM CHLORIDE [Concomitant]
  5. MAGNESIUM OXIDE [Concomitant]
  6. ISOSORBIDE MONONITRATE [Concomitant]
  7. ASPIRIN [Concomitant]
  8. TRICOR [Concomitant]
  9. FOLTX [Concomitant]
  10. NORVASC [Concomitant]
  11. LOPRESSOR [Concomitant]
  12. PLAVIX [Concomitant]
  13. BENICAR [Concomitant]
  14. LASIX [Concomitant]
  15. NEXIUM [Concomitant]
  16. CLONIDINE [Concomitant]
  17. LIPITOR [Concomitant]
  18. BUSPAR [Concomitant]
  19. MECLIZINE [Concomitant]
  20. POTASSIUM CHLORIDE [Concomitant]

REACTIONS (7)
  - BILIARY TRACT DISORDER [None]
  - BLOOD POTASSIUM DECREASED [None]
  - GASTROINTESTINAL DISORDER [None]
  - HAEMORRHOIDS [None]
  - HEPATIC NEOPLASM MALIGNANT [None]
  - PANCREATITIS ACUTE [None]
  - RECTAL POLYP [None]
